FAERS Safety Report 4341218-6 (Version None)
Quarter: 2004Q1

REPORT INFORMATION
  Report Type: 
  Country: None (occurrence: None)
  Receive Date: 20040329
  Receipt Date: 20040225
  Transmission Date: 20041129
  Serious: No
  Sender: FDA-Public Use
  Company Number: 04P-163-0251381-00

PATIENT
  Age: 68 Year
  Sex: Male
  Weight: 133.8111 kg

DRUGS (13)
  1. HUMIRA [Suspect]
     Indication: RHEUMATOID ARTHRITIS
     Dosage: 40 MG, 1 IN 2 WK, SUBCUTANEOUS
     Route: 058
     Dates: start: 20031215
  2. LOSARTAN POTASSIUM [Concomitant]
  3. SODIUM BICARBONATE [Concomitant]
  4. GLIPIZIDE [Concomitant]
  5. LORAZEPAM [Concomitant]
  6. HYDROCODONE [Concomitant]
  7. HYDROCHLOROTHIAZIDE [Concomitant]
  8. COUMADIN [Concomitant]
  9. OXYCODONE HCL [Concomitant]
  10. TRAZODONE HCL [Concomitant]
  11. FINASTERIDE [Concomitant]
  12. EPOGEN [Concomitant]
  13. IRON [Concomitant]

REACTIONS (1)
  - DRUG INEFFECTIVE [None]
